FAERS Safety Report 9184286 (Version 1)
Quarter: 2012Q4

REPORT INFORMATION
  Report Type: 
  Country: US (occurrence: US)
  Receive Date: 20121031
  Receipt Date: 20121031
  Transmission Date: 20130627
  Serious: Yes (Hospitalization, Other)
  Sender: FDA-Public Use
  Company Number: US-ELI_LILLY_AND_COMPANY-US201210006653

PATIENT
  Sex: Female

DRUGS (5)
  1. HUMALOG LISPRO [Suspect]
     Indication: DIABETES MELLITUS
     Dosage: UNK
     Dates: start: 2011
  2. HUMULIN NPH [Suspect]
     Indication: DIABETES MELLITUS
     Dosage: 10 u, each morning
  3. HUMULIN NPH [Suspect]
     Dosage: 12 u, qd
  4. HUMULIN NPH [Suspect]
     Dosage: 16 u, each evening
  5. NOVOLOG [Concomitant]

REACTIONS (8)
  - Hospitalisation [Unknown]
  - Aortic occlusion [Unknown]
  - Neck surgery [Unknown]
  - Brain injury [Not Recovered/Not Resolved]
  - Visual impairment [Not Recovered/Not Resolved]
  - Diarrhoea [Unknown]
  - Vomiting [Unknown]
  - Back pain [Unknown]
